FAERS Safety Report 17495437 (Version 2)
Quarter: 2020Q2

REPORT INFORMATION
  Report Type: Spontaneous
  Country: US (occurrence: US)
  Receive Date: 20200304
  Receipt Date: 20200506
  Transmission Date: 20200713
  Serious: Yes (Other)
  Sender: FDA-Public Use
  Company Number: NVSC2020US060884

PATIENT
  Sex: Female

DRUGS (1)
  1. ENTRESTO [Suspect]
     Active Substance: SACUBITRIL\VALSARTAN
     Indication: CARDIAC FAILURE CHRONIC
     Dosage: UNK UNK, UNKNOWN
     Route: 065

REACTIONS (7)
  - Multiple fractures [Unknown]
  - Varicose vein [Unknown]
  - Fatigue [Unknown]
  - Heart rate decreased [Recovering/Resolving]
  - Bone disorder [Unknown]
  - Hypotension [Unknown]
  - Gait disturbance [Recovering/Resolving]
